FAERS Safety Report 6093057-6 (Version None)
Quarter: 2009Q1

REPORT INFORMATION
  Report Type: 
  Country: None (occurrence: None)
  Receive Date: 20090224
  Receipt Date: 20090209
  Transmission Date: 20090719
  Serious: Yes (Death)
  Sender: FDA-Public Use
  Company Number: 2009S1002316

PATIENT
  Age: 3 Decade
  Sex: Female
  Weight: 44 kg

DRUGS (3)
  1. ATENOLOL [Suspect]
     Dosage: 300 MG; ONCE;
  2. PILSICAINIDE (PILSICAINIDE) [Suspect]
     Dosage: 300 MG; ONCE;
  3. ASA (CON.) [Concomitant]

REACTIONS (12)
  - ARRHYTHMIA [None]
  - ATELECTASIS [None]
  - CARDIO-RESPIRATORY ARREST [None]
  - CARDIOMYOPATHY [None]
  - DILATATION VENTRICULAR [None]
  - DRUG TOXICITY [None]
  - MEDICATION RESIDUE [None]
  - MULTIPLE DRUG OVERDOSE INTENTIONAL [None]
  - PULMONARY CONGESTION [None]
  - PULMONARY OEDEMA [None]
  - SKIN LACERATION [None]
  - TUBULOINTERSTITIAL NEPHRITIS [None]
